FAERS Safety Report 13050770 (Version 1)
Quarter: 2016Q4

REPORT INFORMATION
  Report Type: Spontaneous
  Country: US (occurrence: US)
  Receive Date: 20161221
  Receipt Date: 20161221
  Transmission Date: 20170207
  Serious: No
  Sender: FDA-Public Use
  Company Number: US-NOVOPROD-510284

PATIENT
  Age: 62 Year
  Sex: Male

DRUGS (2)
  1. LEVEMIR [Suspect]
     Active Substance: INSULIN DETEMIR
     Dosage: 120 U, UNK
     Route: 058
  2. LEVEMIR [Suspect]
     Active Substance: INSULIN DETEMIR
     Indication: LATENT AUTOIMMUNE DIABETES IN ADULTS
     Dosage: 50 U, UNK
     Route: 058

REACTIONS (6)
  - Device malfunction [Unknown]
  - Product quality issue [Unknown]
  - Blood glucose increased [Unknown]
  - Lung disorder [Unknown]
  - Intentional product misuse [Unknown]
  - Drug ineffective [Unknown]
